FAERS Safety Report 4744402-2 (Version None)
Quarter: 2005Q3

REPORT INFORMATION
  Report Type: 
  Country: None (occurrence: None)
  Receive Date: 20050811
  Receipt Date: 20050811
  Transmission Date: 20060218
  Serious: Yes (Death)
  Sender: FDA-Public Use
  Company Number: None

PATIENT
  Sex: Female
  Weight: 70 kg

DRUGS (6)
  1. BUSULFAN [Suspect]
     Indication: ACUTE LYMPHOCYTIC LEUKAEMIA
     Dosage: BUSULFAN TEST DOSE INTRAVENOUS
     Route: 042
     Dates: start: 20050718, end: 20050718
  2. CAMPATH [Suspect]
     Dosage: CAMPATH DAY 1 ONLY  INTRAVENOUS
     Route: 042
     Dates: start: 20050728, end: 20050728
  3. FLUDARABINE PHOSPHATE [Suspect]
  4. PREDNISONE [Concomitant]
  5. ANTIBIOTICS [Concomitant]
  6. MORPHINE [Concomitant]

REACTIONS (12)
  - ASTHENIA [None]
  - BLOOD BILIRUBIN INCREASED [None]
  - BLOOD CULTURE POSITIVE [None]
  - FATIGUE [None]
  - GRAFT VERSUS HOST DISEASE [None]
  - HYPOTENSION [None]
  - NAUSEA [None]
  - NEUTROPENIA [None]
  - OXYGEN SATURATION DECREASED [None]
  - RASH [None]
  - SOCIAL AVOIDANT BEHAVIOUR [None]
  - SOMNOLENCE [None]
